FAERS Safety Report 24664690 (Version 1)
Quarter: 2024Q4

REPORT INFORMATION
  Report Type: Spontaneous
  Country: US (occurrence: None)
  Receive Date: 20241125
  Receipt Date: 20241125
  Transmission Date: 20250114
  Serious: Yes (Other)
  Sender: Public
  Company Number: None

PATIENT
  Age: 71 Year
  Sex: Female
  Weight: 91.35 kg

DRUGS (1)
  1. METHYLPREDNISOLONE SODIUM SUCCINATE [Suspect]
     Active Substance: METHYLPREDNISOLONE SODIUM SUCCINATE
     Indication: Osteoarthritis
     Dosage: 125 MG INTRAMUSCULAR
     Route: 030

REACTIONS (3)
  - Depressed level of consciousness [None]
  - Drooling [None]
  - Pulse absent [None]

NARRATIVE: CASE EVENT DATE: 20241119
